FAERS Safety Report 5483520-0 (Version None)
Quarter: 2007Q4

REPORT INFORMATION
  Report Type: 
  Country: None (occurrence: None)
  Receive Date: 20071009
  Receipt Date: 20070925
  Transmission Date: 20080405
  Serious: Yes (Other)
  Sender: FDA-Public Use
  Company Number: 161980USA

PATIENT
  Age: 32 Year
  Sex: Female

DRUGS (8)
  1. BACLOFEN [Suspect]
     Dates: start: 20070301
  2. INTERFERON BETA-1A [Suspect]
     Indication: MULTIPLE SCLEROSIS
     Dosage: 18.8571 MC (44 MCG, 3 IN 1 WK)
     Dates: start: 20060314, end: 20070301
  3. QUETIAPINE FUMARATE [Suspect]
     Indication: INSOMNIA
     Dates: start: 20070301
  4. ELETRIPTAN HYDROBROMIDE [Suspect]
     Indication: MIGRAINE
     Dates: start: 20070301
  5. MODAFINIL [Suspect]
     Indication: FATIGUE
     Dates: start: 20070301
  6. SOLIFENACIN [Suspect]
     Indication: BLADDER DISORDER
     Dates: start: 20070301
  7. MINOCYCLINE HCL [Suspect]
     Indication: SWEAT GLAND INFECTION
     Dates: start: 20070301
  8. CITALOPRAM HYDROBROMIDE [Suspect]
     Dates: start: 20070301

REACTIONS (4)
  - ABORTION SPONTANEOUS [None]
  - DRUG EXPOSURE BEFORE PREGNANCY [None]
  - DRUG EXPOSURE DURING PREGNANCY [None]
  - PREGNANCY [None]
